FAERS Safety Report 11001776 (Version 6)
Quarter: 2018Q1

REPORT INFORMATION
  Report Type: Spontaneous
  Country: US (occurrence: US)
  Receive Date: 20150408
  Receipt Date: 20180302
  Transmission Date: 20180508
  Serious: Yes (Hospitalization, Other)
  Sender: FDA-Public Use
  Company Number: US-PFIZER INC-2015120162

PATIENT
  Age: 67 Year
  Sex: Female
  Weight: 88.9 kg

DRUGS (3)
  1. XELJANZ [Suspect]
     Active Substance: TOFACITINIB CITRATE
     Dosage: 5 MG, 2X/DAY
     Route: 048
     Dates: start: 2016
  2. XELJANZ [Suspect]
     Active Substance: TOFACITINIB CITRATE
     Dosage: 5 MG, UNK
  3. XELJANZ [Suspect]
     Active Substance: TOFACITINIB CITRATE
     Indication: RHEUMATOID ARTHRITIS
     Dosage: 5 MG, 2X/DAY
     Route: 048
     Dates: start: 201412

REACTIONS (5)
  - Musculoskeletal disorder [Recovered/Resolved]
  - Speech disorder [Not Recovered/Not Resolved]
  - Malaise [Recovered/Resolved]
  - Drug dose omission [Unknown]
  - Laryngitis [Not Recovered/Not Resolved]

NARRATIVE: CASE EVENT DATE: 201412
